FAERS Safety Report 4320556-7 (Version None)
Quarter: 2004Q1

REPORT INFORMATION
  Report Type: 
  Country: None (occurrence: None)
  Receive Date: 20040319
  Receipt Date: 20040319
  Transmission Date: 20041129
  Serious: Yes (Hospitalization)
  Sender: FDA-Public Use
  Company Number: None

PATIENT
  Age: 78 Year
  Sex: Female
  Weight: 79.3795 kg

DRUGS (1)
  1. COUMADIN [Suspect]

REACTIONS (6)
  - CONFUSIONAL STATE [None]
  - CONTUSION [None]
  - FAECAL OCCULT BLOOD POSITIVE [None]
  - INTERNATIONAL NORMALISED RATIO INCREASED [None]
  - PROTHROMBIN TIME PROLONGED [None]
  - TREATMENT NONCOMPLIANCE [None]
